FAERS Safety Report 24580767 (Version 1)
Quarter: 2024Q4

REPORT INFORMATION
  Report Type: Spontaneous
  Country: US (occurrence: None)
  Receive Date: 20241105
  Receipt Date: 20241105
  Transmission Date: 20250115
  Serious: Yes (Other)
  Sender: Public
  Company Number: None

PATIENT
  Age: 32 Year
  Sex: Female
  Weight: 80.74 kg

DRUGS (2)
  1. VILAZODONE [Suspect]
     Active Substance: VILAZODONE
     Dates: start: 20221218
  2. CLOMID [Concomitant]
     Active Substance: CLOMIPHENE CITRATE

REACTIONS (9)
  - Exposure during pregnancy [None]
  - Maternal drugs affecting foetus [None]
  - Uterine atony [None]
  - Postpartum haemorrhage [None]
  - Anaemia [None]
  - Thrombosis [None]
  - Transfusion [None]
  - Foetal distress syndrome [None]
  - Bradycardia foetal [None]

NARRATIVE: CASE EVENT DATE: 20230912
